FAERS Safety Report 5194816-4 (Version None)
Quarter: 2006Q4

REPORT INFORMATION
  Report Type: 
  Country: None (occurrence: None)
  Receive Date: 20061229
  Receipt Date: 20061221
  Transmission Date: 20070319
  Serious: Yes (Hospitalization)
  Sender: FDA-Public Use
  Company Number: DK-PURDUE-DEU_2006_0002813

PATIENT
  Age: 39 Year
  Sex: Female
  Weight: 54 kg

DRUGS (3)
  1. MORPHINE SULFATE [Suspect]
     Indication: EPIDURAL ANAESTHESIA
     Dosage: 400 MG, SINGLE
     Route: 008
  2. MORPHINE SULFATE [Suspect]
     Dosage: 4 MG, TWICE
     Route: 008
  3. BUPIVACAINE [Concomitant]

REACTIONS (6)
  - ACCIDENTAL OVERDOSE [None]
  - CYANOSIS [None]
  - ELECTROCARDIOGRAM QT CORRECTED INTERVAL [None]
  - MEDICATION ERROR [None]
  - RESPIRATORY DEPRESSION [None]
  - SOMNOLENCE [None]
